FAERS Safety Report 11770167 (Version 3)
Quarter: 2015Q4

REPORT INFORMATION
  Report Type: Spontaneous
  Country: PL (occurrence: PL)
  Receive Date: 20151123
  Receipt Date: 20151210
  Transmission Date: 20160304
  Serious: Yes (Other)
  Sender: FDA-Public Use
  Company Number: PL-BAXTER-2015BAX062140

PATIENT
  Age: 62 Year
  Sex: Female

DRUGS (4)
  1. ENDOXAN [Suspect]
     Active Substance: CYCLOPHOSPHAMIDE
     Indication: OFF LABEL USE
     Route: 065
  2. METHOTREXATE [Suspect]
     Active Substance: METHOTREXATE
     Indication: VASCULITIS NECROTISING
     Route: 065
  3. CHLOROQUINE. [Suspect]
     Active Substance: CHLOROQUINE
     Indication: VASCULITIS NECROTISING
     Route: 065
  4. ENDOXAN [Suspect]
     Active Substance: CYCLOPHOSPHAMIDE
     Indication: VASCULITIS NECROTISING
     Dosage: TOO LOW DOSE
     Route: 065

REACTIONS (1)
  - Disease progression [Recovering/Resolving]
